FAERS Safety Report 9851356 (Version 2)
Quarter: 2017Q4

REPORT INFORMATION
  Report Type: Report from Study
  Country: JP (occurrence: JP)
  Receive Date: 20140129
  Receipt Date: 20171229
  Transmission Date: 20180321
  Serious: Yes (Hospitalization)
  Sender: FDA-Public Use
  Company Number: JP-ROCHE-1338790

PATIENT
  Age: 80 Year
  Sex: Male
  Weight: 56 kg

DRUGS (16)
  1. NORVASC [Concomitant]
     Active Substance: AMLODIPINE BESYLATE
     Route: 065
     Dates: start: 20080705
  2. TAMIFLU [Concomitant]
     Active Substance: OSELTAMIVIR PHOSPHATE
     Indication: INFLUENZA
     Dosage: UNK
     Route: 048
     Dates: start: 20150113, end: 20150117
  3. BLINDED VERTEPORFIN PDT [Suspect]
     Active Substance: VERTEPORFIN
     Indication: AGE-RELATED MACULAR DEGENERATION
     Route: 050
     Dates: start: 20131122, end: 20131122
  4. RANIBIZUMAB. [Suspect]
     Active Substance: RANIBIZUMAB
     Dosage: DOSE; 0.5MG
     Route: 050
     Dates: start: 20131219
  5. BLINDED VERTEPORFIN PDT [Suspect]
     Active Substance: VERTEPORFIN
     Indication: POLYPOIDAL CHOROIDAL VASCULOPATHY
  6. BAYASPIRIN [Concomitant]
     Active Substance: ASPIRIN
     Route: 065
     Dates: start: 20130805
  7. BIOFERMIN T [Concomitant]
  8. RANIBIZUMAB. [Suspect]
     Active Substance: RANIBIZUMAB
     Indication: POLYPOIDAL CHOROIDAL VASCULOPATHY
     Dosage: DOSE: 0.5MG?MOST RECENT DOSE:19/DEC/2013,
     Route: 050
     Dates: start: 20131122
  9. VISUDYNE [Suspect]
     Active Substance: VERTEPORFIN
     Indication: POLYPOIDAL CHOROIDAL VASCULOPATHY
     Dosage: 0.03 ML, UNK
     Route: 042
     Dates: start: 20131018, end: 20131018
  10. MUCOSOLVAN [Concomitant]
     Active Substance: AMBROXOL HYDROCHLORIDE
     Route: 065
     Dates: start: 20110601
  11. RANIBIZUMAB. [Suspect]
     Active Substance: RANIBIZUMAB
     Indication: AGE-RELATED MACULAR DEGENERATION
     Route: 050
     Dates: start: 20131018
  12. VISUDYNE [Suspect]
     Active Substance: VERTEPORFIN
     Indication: AGE-RELATED MACULAR DEGENERATION
     Dosage: 0.03 ML, UNK
     Route: 042
     Dates: start: 20150605
  13. CRAVIT [Concomitant]
     Active Substance: LEVOFLOXACIN
     Indication: AGE-RELATED MACULAR DEGENERATION
     Route: 065
     Dates: start: 20140114
  14. CRAVIT [Concomitant]
     Active Substance: LEVOFLOXACIN
     Indication: POLYPOIDAL CHOROIDAL VASCULOPATHY
  15. MICARDIS [Concomitant]
     Active Substance: TELMISARTAN
     Route: 065
     Dates: start: 20091209
  16. HARNAL [Concomitant]
     Active Substance: TAMSULOSIN HYDROCHLORIDE
     Route: 065
     Dates: start: 20080507

REACTIONS (1)
  - Presyncope [Recovered/Resolved]

NARRATIVE: CASE EVENT DATE: 20140116
